FAERS Safety Report 24838983 (Version 5)
Quarter: 2025Q4

REPORT INFORMATION
  Report Type: Spontaneous
  Country: CO (occurrence: CO)
  Receive Date: 20250114
  Receipt Date: 20251009
  Transmission Date: 20260117
  Serious: Yes (Other)
  Sender: ALEXION PHARMACEUTICALS
  Company Number: CO-ASTRAZENECA-202501GLO006627CO

PATIENT
  Age: 41 Year
  Sex: Female

DRUGS (3)
  1. OLAPARIB [Suspect]
     Active Substance: OLAPARIB
     Indication: Ovarian cancer
     Dosage: 300 MILLIGRAM, BID
     Route: 065
     Dates: start: 202302
  2. OLAPARIB [Suspect]
     Active Substance: OLAPARIB
     Indication: BRCA1 gene mutation
     Dosage: 150 MILLIGRAM, BID
     Route: 065
     Dates: start: 202305
  3. OLAPARIB [Suspect]
     Active Substance: OLAPARIB
     Dosage: 300 MILLIGRAM, BID

REACTIONS (1)
  - Cutaneous vasculitis [Recovering/Resolving]
